FAERS Safety Report 5286330-2 (Version None)
Quarter: 2007Q1

REPORT INFORMATION
  Report Type: 
  Country: None (occurrence: None)
  Receive Date: 20070329
  Receipt Date: 20070312
  Transmission Date: 20070707
  Serious: Yes (Other)
  Sender: FDA-Public Use
  Company Number: 154303ISR

PATIENT
  Age: 61 Year

DRUGS (6)
  1. DOXORUBICIN HCL [Suspect]
     Indication: NON-HODGKIN'S LYMPHOMA
     Dosage: ?? (50 MG/M2) INTRAVENOUS (NOT OTHERWISE SPECIFIED)
     Route: 042
  2. ETOPOSIDE [Suspect]
     Indication: NON-HODGKIN'S LYMPHOMA
     Dosage: ?? (100 MG/M2) INTRAVENOUS (NOT OTHERWISE SPECIFIED)
     Route: 042
  3. RITUXIMAB [Concomitant]
  4. PREDNISOLONE [Concomitant]
  5. CYCLOPHOSPHAMIDE [Concomitant]
  6. VINCRISTINE [Concomitant]

REACTIONS (2)
  - LUNG INFILTRATION [None]
  - PNEUMOCYSTIS JIROVECI PNEUMONIA [None]
